FAERS Safety Report 16204296 (Version 1)
Quarter: 2019Q2

REPORT INFORMATION
  Report Type: Spontaneous
  Country: US (occurrence: US)
  Receive Date: 20190416
  Receipt Date: 20190416
  Transmission Date: 20190711
  Serious: No
  Sender: FDA-Public Use
  Company Number: US-ELI_LILLY_AND_COMPANY-US201904006891

PATIENT
  Sex: Female

DRUGS (1)
  1. HUMALOG [Suspect]
     Active Substance: INSULIN LISPRO
     Indication: DIABETES MELLITUS
     Dosage: UNK, SLIDING SCALE THREE TIMES A DAY
     Route: 058
     Dates: start: 201901

REACTIONS (2)
  - Haemorrhage [Recovered/Resolved]
  - Injury associated with device [Recovered/Resolved]
